FAERS Safety Report 9284591 (Version 1)
Quarter: 2013Q2

REPORT INFORMATION
  Report Type: Spontaneous
  Country: GB (occurrence: GB)
  Receive Date: 20130512
  Receipt Date: 20130512
  Transmission Date: 20140414
  Serious: Yes (Death, Hospitalization)
  Sender: FDA-Public Use
  Company Number: GB-TEVA-402513ISR

PATIENT
  Age: 36 Year
  Sex: Female
  Weight: 67 kg

DRUGS (3)
  1. CITALOPRAM [Suspect]
     Indication: DEPRESSION
     Dosage: DOSE INCREASED 4 WEEKS PRIOR TO ADMISSION
     Route: 048
  2. PARACETAMOL [Concomitant]
     Indication: MALAISE
     Dosage: THOUGHT TO BE A MAXIMUM OF 1 G ONLY.
  3. IBUPROFEN [Concomitant]
     Indication: MALAISE
     Dosage: THOUGHT TO BE A MAXIMUM OF 1 G ONLY.

REACTIONS (30)
  - Hepatitis acute [Fatal]
  - Hepatic failure [Fatal]
  - Hepatic necrosis [Fatal]
  - Sepsis [Unknown]
  - Jaundice [Unknown]
  - Ascites [Unknown]
  - Peritonitis bacterial [Unknown]
  - Circulatory collapse [Unknown]
  - Hypothermia [Unknown]
  - Hepatic steatosis [Unknown]
  - Pulmonary congestion [Unknown]
  - Intra-abdominal haemorrhage [Unknown]
  - Necrosis [Unknown]
  - Pulmonary oedema [Unknown]
  - Arteriosclerosis [Unknown]
  - Fibrosis [Unknown]
  - Lethargy [Unknown]
  - Diarrhoea [Unknown]
  - Decreased appetite [Unknown]
  - Confusional state [Unknown]
  - Urine output decreased [Unknown]
  - Dyspnoea [Unknown]
  - Ceruloplasmin decreased [Unknown]
  - Blood copper decreased [Unknown]
  - Renal function test abnormal [Unknown]
  - Coagulopathy [Unknown]
  - Respiratory disorder [Unknown]
  - Vomiting [Unknown]
  - Abdominal discomfort [Unknown]
  - Malaise [Unknown]
